FAERS Safety Report 16993054 (Version 2)
Quarter: 2019Q4

REPORT INFORMATION
  Report Type: Spontaneous
  Country: FR (occurrence: FR)
  Receive Date: 20191105
  Receipt Date: 20191108
  Transmission Date: 20200122
  Serious: Yes (Hospitalization, Other)
  Sender: FDA-Public Use
  Company Number: FR-PFIZER INC-2019469652

PATIENT
  Age: 72 Year
  Sex: Female

DRUGS (1)
  1. THYROXINE [Suspect]
     Active Substance: LEVOTHYROXINE
     Indication: PRIMARY HYPOTHYROIDISM
     Dosage: 100 UG, DAILY

REACTIONS (8)
  - Amnesia [Unknown]
  - Behaviour disorder [Unknown]
  - Confusional state [Unknown]
  - Myxoedema coma [Unknown]
  - Treatment noncompliance [Unknown]
  - Agitation [Unknown]
  - Oedema peripheral [Unknown]
  - Hyperreflexia [Unknown]
